FAERS Safety Report 8582965-X (Version None)
Quarter: 2012Q3

REPORT INFORMATION
  Report Type: 
  Country: None (occurrence: None)
  Receive Date: 20120809
  Receipt Date: 20120806
  Transmission Date: 20120928
  Serious: Yes (Hospitalization, Other)
  Sender: FDA-Public Use
  Company Number: CA-PFIZER INC-2012190760

PATIENT
  Sex: Female
  Weight: 2.9 kg

DRUGS (6)
  1. OXYCODONE HCL [Suspect]
     Dosage: UNKNOWN, EVERY 6 HOURS FOR 2 DAYS
     Route: 063
  2. OXYCODONE HCL [Suspect]
     Indication: AFTERBIRTH PAIN
     Dosage: UNKNOWN, EVERY 4 HOURS FOR 2 DAYS
     Route: 063
  3. IBUPROFEN [Suspect]
     Dosage: UNK
     Route: 063
  4. ACETAMINOPHEN W/ CODEINE [Suspect]
     Indication: PAIN
     Dosage: 1.4 MG/KG/DAY, 3 TIMES A DAY
     Route: 063
  5. ACETAMINOPHEN [Suspect]
     Dosage: UNK
     Route: 063
  6. ACETAMINOPHEN W/ CODEINE [Suspect]
     Indication: COUGH
     Dosage: 2.1 MG/KG, UNK
     Route: 063

REACTIONS (4)
  - RESPIRATORY ARREST [None]
  - HYPERSOMNIA [None]
  - EXPOSURE DURING BREAST FEEDING [None]
  - LETHARGY [None]
